FAERS Safety Report 8576792-7 (Version None)
Quarter: 2012Q3

REPORT INFORMATION
  Report Type: 
  Country: None (occurrence: None)
  Receive Date: 20120807
  Receipt Date: 20120803
  Transmission Date: 20120928
  Serious: Yes (Hospitalization)
  Sender: FDA-Public Use
  Company Number: AR-AMGEN-KDC379596

PATIENT
  Age: 62 Year
  Sex: Male

DRUGS (14)
  1. IBUPROFEN [Concomitant]
     Dosage: 400 MG, QID
     Route: 048
  2. MIDAZOLAM [Concomitant]
     Dosage: 7.5 MG, QD
     Route: 048
  3. CLONAZEPAM [Concomitant]
     Dosage: .5 MG, QD
  4. SEVELAMER [Concomitant]
     Dosage: 800 MG, UNK
     Route: 048
  5. ISOSORBIDE [Concomitant]
     Dosage: 20 MG, QD
  6. LACTULOSE [Concomitant]
     Dosage: 10 ML, QD
  7. CALCIUM CARBONATE [Concomitant]
     Dosage: 1250 MG, BID
     Route: 048
  8. ERYTHROPOIETIN HUMAN [Concomitant]
     Dosage: 12000 IU, QWK
  9. TRAMADOL HCL [Concomitant]
     Dosage: 50 MG, Q12H
  10. PARICALCITOL [Concomitant]
     Dosage: 5 MUG, UNK
     Route: 042
  11. CINACALCET HYDROCHLORIDE [Suspect]
     Indication: HYPERPARATHYROIDISM SECONDARY
     Dosage: UNK UNK, QD
     Route: 048
     Dates: start: 20070423
  12. OMEPRAZOLE [Concomitant]
     Dosage: 20 MG, QD
     Route: 048
  13. DILTIAZEM HCL [Concomitant]
     Dosage: 60 MG, QD
     Route: 048
  14. ATENOLOL [Concomitant]
     Dosage: 25 MG, BID
     Route: 048

REACTIONS (1)
  - GASTRITIS EROSIVE [None]
